FAERS Safety Report 17757896 (Version 1)
Quarter: 2020Q2

REPORT INFORMATION
  Report Type: Report from Study
  Country: MX (occurrence: MX)
  Receive Date: 20200507
  Receipt Date: 20200507
  Transmission Date: 20200714
  Serious: Yes (Death)
  Sender: FDA-Public Use
  Company Number: MX-CELGENEUS-MEX-20200501935

PATIENT
  Age: 17 Year
  Sex: Male

DRUGS (1)
  1. VIDAZA [Suspect]
     Active Substance: AZACITIDINE
     Indication: MYELODYSPLASTIC SYNDROME
     Dosage: 126 MILLIGRAM
     Route: 058
     Dates: start: 20190811

REACTIONS (1)
  - Death [Fatal]

NARRATIVE: CASE EVENT DATE: 20200418
